FAERS Safety Report 15716455 (Version 1)
Quarter: 2018Q4

REPORT INFORMATION
  Report Type: Spontaneous
  Country: US (occurrence: US)
  Receive Date: 20181213
  Receipt Date: 20181213
  Transmission Date: 20190205
  Serious: No
  Sender: FDA-Public Use
  Company Number: US-DRREDDYS-USA/USA/18/0103712

PATIENT
  Sex: Male
  Weight: 72.72 kg

DRUGS (7)
  1. OMEPRAZOLE. [Suspect]
     Active Substance: OMEPRAZOLE
     Route: 065
  2. GLUCOPHAGE [Concomitant]
     Active Substance: METFORMIN HYDROCHLORIDE
     Indication: BLOOD PRESSURE ABNORMAL
     Route: 065
  3. JANUVIA [Concomitant]
     Active Substance: SITAGLIPTIN PHOSPHATE
     Indication: BLOOD PRESSURE ABNORMAL
     Route: 065
  4. PRANDIN [Concomitant]
     Active Substance: REPAGLINIDE
     Indication: BLOOD PRESSURE ABNORMAL
     Route: 065
  5. CRESTOR [Concomitant]
     Active Substance: ROSUVASTATIN CALCIUM
     Indication: BLOOD PRESSURE ABNORMAL
     Route: 065
  6. RANITIDINE. [Concomitant]
     Active Substance: RANITIDINE
     Indication: HYPERCHLORHYDRIA
     Route: 065
  7. OMEPRAZOLE. [Suspect]
     Active Substance: OMEPRAZOLE
     Indication: GASTROOESOPHAGEAL REFLUX DISEASE
     Route: 065

REACTIONS (2)
  - Product complaint [Unknown]
  - Drug ineffective [Unknown]
